FAERS Safety Report 5912432-0 (Version None)
Quarter: 2008Q4

REPORT INFORMATION
  Report Type: 
  Country: None (occurrence: None)
  Receive Date: 20081007
  Receipt Date: 20081007
  Transmission Date: 20090506
  Serious: Yes (Death)
  Sender: FDA-Public Use
  Company Number: None

PATIENT
  Sex: Female
  Weight: 112.9457 kg

DRUGS (2)
  1. HABITROL [Suspect]
     Dosage: 1 PATCH DAILY CUTANEOUS
     Route: 003
  2. HABITROL [Suspect]

REACTIONS (1)
  - DEATH [None]
